FAERS Safety Report 24790882 (Version 1)
Quarter: 2024Q4

REPORT INFORMATION
  Report Type: Report from Study
  Country: CA (occurrence: CA)
  Receive Date: 20241230
  Receipt Date: 20241230
  Transmission Date: 20250115
  Serious: Yes (Other)
  Sender: ABBVIE
  Company Number: CA-ABBVIE-6060805

PATIENT
  Age: 33 Year
  Sex: Female

DRUGS (1)
  1. RINVOQ [Suspect]
     Active Substance: UPADACITINIB
     Indication: Crohn^s disease
     Route: 048
     Dates: start: 20240918

REACTIONS (5)
  - Diversion colitis [Unknown]
  - Anal fistula [Unknown]
  - Crohn^s disease [Unknown]
  - Stomal hernia [Unknown]
  - Serrated polyposis syndrome [Unknown]

NARRATIVE: CASE EVENT DATE: 20240101
